FAERS Safety Report 23322889 (Version 1)
Quarter: 2023Q4

REPORT INFORMATION
  Report Type: Spontaneous
  Country: US (occurrence: US)
  Receive Date: 20231220
  Receipt Date: 20231220
  Transmission Date: 20240109
  Serious: Yes (Other)
  Sender: FDA-Public Use
  Company Number: US-PAIPHARMA-2023-US-043595

PATIENT
  Age: 59 Year
  Sex: Male

DRUGS (3)
  1. HYDROXYZINE HYDROCHLORIDE [Suspect]
     Active Substance: HYDROXYZINE HYDROCHLORIDE
     Indication: Pruritus
  2. CYCLOSPORINE [Concomitant]
     Active Substance: CYCLOSPORINE
  3. ACITRETIN [Concomitant]
     Active Substance: ACITRETIN

REACTIONS (2)
  - Delusion of parasitosis [Unknown]
  - Drug withdrawal syndrome [Unknown]
